FAERS Safety Report 18656866 (Version 1)
Quarter: 2020Q4

REPORT INFORMATION
  Report Type: Spontaneous
  Country: US (occurrence: US)
  Receive Date: 20201223
  Receipt Date: 20201223
  Transmission Date: 20210114
  Serious: Yes (Disabling, Other)
  Sender: FDA-Public Use
  Company Number: US-PURDUE-USA-2020-0191770

PATIENT
  Sex: Male

DRUGS (2)
  1. OXYCONTIN [Suspect]
     Active Substance: OXYCODONE HYDROCHLORIDE
     Indication: PRODUCT USED FOR UNKNOWN INDICATION
     Route: 064
  2. DILAUDID [Suspect]
     Active Substance: HYDROMORPHONE HYDROCHLORIDE
     Indication: PRODUCT USED FOR UNKNOWN INDICATION
     Route: 064

REACTIONS (9)
  - Drug withdrawal syndrome [Unknown]
  - Autism spectrum disorder [Unknown]
  - Learning disability [Unknown]
  - Bronchial hyperreactivity [Unknown]
  - Foetal exposure during pregnancy [Unknown]
  - Seizure [Unknown]
  - Drug dependence [Unknown]
  - Developmental delay [Unknown]
  - Post-traumatic stress disorder [Unknown]
